FAERS Safety Report 21921146 (Version 4)
Quarter: 2023Q2

REPORT INFORMATION
  Report Type: Report from Study
  Country: CN (occurrence: CN)
  Receive Date: 20230127
  Receipt Date: 20230404
  Transmission Date: 20230722
  Serious: Yes (Hospitalization)
  Sender: FDA-Public Use
  Company Number: CN-G1 THERAPEUTICS-2023G1CN0000007

PATIENT

DRUGS (19)
  1. TRILACICLIB [Suspect]
     Active Substance: TRILACICLIB
     Indication: Myelosuppression
     Dosage: 328.8 MG; 240  MG/M2 ON DAY 1 AND 8 OF EACH 21-DAY CYCLE
     Route: 042
     Dates: start: 20220420, end: 20220511
  2. TRILACICLIB [Suspect]
     Active Substance: TRILACICLIB
     Dosage: 328.8 MG; 240  MG/M2 ON DAY 1 AND 8 OF EACH 21-DAY CYCLE
     Route: 042
     Dates: start: 20220524, end: 20220915
  3. TRILACICLIB [Suspect]
     Active Substance: TRILACICLIB
     Dosage: 328.8 MG; 240  MG/M2 ON DAY 1 AND 8 OF EACH 21-DAY CYCLE
     Route: 042
     Dates: start: 20221009, end: 20221215
  4. CARBOPLATIN [Suspect]
     Active Substance: CARBOPLATIN
     Indication: Triple negative breast cancer
     Dosage: 173.2 MG; AUC 2 ON DAY 1 AND 8 OF EACH 21-DAY CYCLE
     Route: 042
     Dates: start: 20220420, end: 20220511
  5. CARBOPLATIN [Suspect]
     Active Substance: CARBOPLATIN
     Dosage: 138.6 MG;  AUC 2 ON DAY 1 AND 8 OF EACH 21-DAY CYCLE
     Route: 042
     Dates: start: 20220524, end: 20220915
  6. CARBOPLATIN [Suspect]
     Active Substance: CARBOPLATIN
     Dosage: 138.6 MG;  AUC 2 ON DAY 1 AND 8 OF EACH 21-DAY CYCLE
     Route: 042
     Dates: start: 20221009, end: 20221215
  7. GEMCITABINE [Suspect]
     Active Substance: GEMCITABINE
     Indication: Triple negative breast cancer
     Dosage: 1370 MG; 1000  MG/M2 ON DAY 1 AND 8 OF EACH 21-DAY CYCLE
     Route: 042
     Dates: start: 20220420, end: 20220511
  8. GEMCITABINE [Suspect]
     Active Substance: GEMCITABINE
     Dosage: 1096 MG; 800  MG/M2 ON DAY 1 AND 8 OF EACH 21-DAY CYCLE
     Route: 042
     Dates: start: 20220524, end: 20220915
  9. GEMCITABINE [Suspect]
     Active Substance: GEMCITABINE
     Dosage: 1096 MG; 800  MG/M2 ON DAY 1 AND 8 OF EACH 21-DAY CYCLE
     Route: 042
     Dates: start: 20221009, end: 20221215
  10. PHOSPHOLIPID [Concomitant]
     Active Substance: PHOSPHOLIPID
     Indication: Prophylaxis
     Dosage: 456 MG, TID
     Route: 048
     Dates: start: 20221201
  11. OXYCODONE HYDROCHLORIDE [Concomitant]
     Active Substance: OXYCODONE HYDROCHLORIDE
     Indication: Breast pain
     Dosage: 10 MG, 12 HOURS INTERVAL
     Route: 048
     Dates: start: 20221227
  12. OXYCODONE HYDROCHLORIDE [Concomitant]
     Active Substance: OXYCODONE HYDROCHLORIDE
     Indication: Prophylaxis of nausea and vomiting
     Dosage: 8 MG, 8 HOURS INTERVAL
     Route: 048
     Dates: start: 20221227
  13. LACTULOSE [Concomitant]
     Active Substance: LACTULOSE
     Indication: Constipation
     Dosage: 15 ML, BID
     Route: 048
     Dates: start: 20221227
  14. CELECOXIB [Concomitant]
     Active Substance: CELECOXIB
     Indication: Breast pain
     Dosage: 200 MG, Q12H
     Route: 048
     Dates: start: 20221208, end: 20221225
  15. LEUCOGEN [Concomitant]
     Active Substance: LEUCOGEN
     Indication: Platelet count decreased
     Dosage: 20 MG, TID
     Route: 048
     Dates: start: 20221208, end: 20221212
  16. ESOMEPRAZOLE SODIUM [Concomitant]
     Active Substance: ESOMEPRAZOLE SODIUM
     Indication: Prophylactic chemotherapy
     Dosage: 40 MG, QD
     Route: 042
     Dates: start: 20221215, end: 20221215
  17. DEXAMETHASONE [Concomitant]
     Active Substance: DEXAMETHASONE
     Indication: Prophylactic chemotherapy
     Dosage: 10 MG, QD
     Route: 042
     Dates: start: 20221215, end: 20221215
  18. PALONOSETRON HYDROCHLORIDE [Concomitant]
     Active Substance: PALONOSETRON HYDROCHLORIDE
     Indication: Prophylactic chemotherapy
     Dosage: 0.25 MG, QD
     Route: 042
     Dates: start: 20221215, end: 20221215
  19. ONDANSETRON HYDROCHLORIDE [Concomitant]
     Active Substance: ONDANSETRON HYDROCHLORIDE
     Dosage: 8 MG EVERY 8 HOURS
     Route: 048
     Dates: start: 20221227

REACTIONS (1)
  - Pneumonia bacterial [Recovered/Resolved]

NARRATIVE: CASE EVENT DATE: 20230109
